FAERS Safety Report 8916340 (Version 1)
Quarter: 2012Q4

REPORT INFORMATION
  Report Type: 
  Country: US (occurrence: US)
  Receive Date: 20121120
  Receipt Date: 20121120
  Transmission Date: 20130627
  Serious: Yes (Other)
  Sender: FDA-Public Use
  Company Number: US-ASTRAZENECA-2011SE09789

PATIENT
  Age: 74 Year
  Sex: Female

DRUGS (4)
  1. NEXIUM [Suspect]
     Route: 048
  2. NEXIUM [Suspect]
     Dosage: TWICE DAILY
     Route: 048
  3. NEXIUM [Suspect]
     Route: 048
     Dates: start: 2010
  4. NEXIUM [Suspect]
     Route: 048

REACTIONS (7)
  - Precancerous cells present [Unknown]
  - Barrett^s oesophagus [Unknown]
  - Malaise [Unknown]
  - Abdominal pain upper [Unknown]
  - Diarrhoea [Unknown]
  - Drug intolerance [Unknown]
  - Intentional drug misuse [Unknown]
